FAERS Safety Report 23454860 (Version 2)
Quarter: 2024Q4

REPORT INFORMATION
  Report Type: Spontaneous
  Country: AR (occurrence: AR)
  Receive Date: 20240130
  Receipt Date: 20241120
  Transmission Date: 20250115
  Serious: Yes (Other)
  Sender: SANDOZ
  Company Number: AR-SANDOZ-SDZ2024AR007585

PATIENT
  Age: 8 Year
  Sex: Female
  Weight: 47.4 kg

DRUGS (2)
  1. OMNITROPE [Suspect]
     Active Substance: SOMATROPIN
     Indication: Growth retardation
     Dosage: 1 MG (DAILY)
     Route: 058
     Dates: start: 20210715
  2. OMNITROPE [Suspect]
     Active Substance: SOMATROPIN
     Indication: Turner^s syndrome
     Dosage: 2.3 MG, QD
     Route: 058
     Dates: start: 20210715

REACTIONS (3)
  - Vitamin D deficiency [Unknown]
  - Weight increased [Unknown]
  - Blood insulin increased [Unknown]

NARRATIVE: CASE EVENT DATE: 20231101
